FAERS Safety Report 13265926 (Version 4)
Quarter: 2017Q2

REPORT INFORMATION
  Report Type: Report from Study
  Country: JP (occurrence: JP)
  Receive Date: 20170223
  Receipt Date: 20170613
  Transmission Date: 20170830
  Serious: Yes (Death, Life-Threatening, Hospitalization, Other)
  Sender: FDA-Public Use
  Company Number: JP-ELI_LILLY_AND_COMPANY-JP201702000625

PATIENT
  Age: 71 Year
  Sex: Male
  Weight: 50 kg

DRUGS (16)
  1. CETUXIMAB. [Suspect]
     Active Substance: CETUXIMAB
     Indication: OROPHARYNGEAL CANCER RECURRENT
     Dosage: 680 MG, UNKNOWN
     Route: 042
     Dates: start: 20161014
  2. PACLITAXEL. [Concomitant]
     Active Substance: PACLITAXEL
     Dosage: 60 MG, WEEKLY (1/W)
     Route: 042
     Dates: start: 20161214, end: 20170118
  3. MUCOSTA [Concomitant]
     Active Substance: REBAMIPIDE
     Indication: PRODUCT USED FOR UNKNOWN INDICATION
     Dosage: 100 MG, UNK
     Route: 048
  4. EURODIN                            /00401202/ [Concomitant]
     Active Substance: DIHYDROERGOCRISTINE MESYLATE
     Indication: PRODUCT USED FOR UNKNOWN INDICATION
     Dosage: 2 MG, UNK
     Route: 048
  5. PACLITAXEL. [Concomitant]
     Active Substance: PACLITAXEL
     Dosage: 60 MG, UNK
     Route: 042
     Dates: start: 20161118, end: 20161118
  6. OLMETEC [Concomitant]
     Active Substance: OLMESARTAN MEDOXOMIL
     Indication: PRODUCT USED FOR UNKNOWN INDICATION
     Dosage: 10 MG, UNK
     Route: 048
  7. DILTIAZEM HYDROCHLORIDE. [Concomitant]
     Active Substance: DILTIAZEM HYDROCHLORIDE
     Indication: PRODUCT USED FOR UNKNOWN INDICATION
     Dosage: 100 MG, UNK
     Route: 048
  8. URSO [Concomitant]
     Active Substance: URSODIOL
     Indication: PRODUCT USED FOR UNKNOWN INDICATION
     Dosage: 100 MG, UNK
     Route: 048
  9. MYONAL                             /00287502/ [Concomitant]
     Active Substance: EPERISONE HYDROCHLORIDE
     Indication: PRODUCT USED FOR UNKNOWN INDICATION
     Dosage: 50 MG, UNK
     Route: 048
  10. MINOMYCIN [Concomitant]
     Active Substance: MINOCYCLINE HYDROCHLORIDE
     Indication: PRODUCT USED FOR UNKNOWN INDICATION
     Dosage: 50 MG, UNK
     Route: 048
  11. CETUXIMAB. [Suspect]
     Active Substance: CETUXIMAB
     Dosage: 400 MG, WEEKLY (1/W)
     Route: 042
     Dates: start: 20161021, end: 20161125
  12. PACLITAXEL. [Concomitant]
     Active Substance: PACLITAXEL
     Indication: OROPHARYNGEAL CANCER RECURRENT
     Dosage: 130 MG, WEEKLY (1/W)
     Route: 042
     Dates: start: 20161014, end: 20161021
  13. ELIQUIS [Concomitant]
     Active Substance: APIXABAN
     Indication: ATRIAL FIBRILLATION
     Dosage: UNK UNK, UNKNOWN
     Route: 048
  14. BEPRICOR [Concomitant]
     Active Substance: BEPRIDIL
     Indication: PRODUCT USED FOR UNKNOWN INDICATION
     Dosage: 50 MG, UNK
     Route: 048
  15. BISOPROLOL FUMARATE. [Concomitant]
     Active Substance: BISOPROLOL FUMARATE
     Indication: PRODUCT USED FOR UNKNOWN INDICATION
     Dosage: 2.5 MG, UNK
     Route: 048
  16. CETUXIMAB. [Suspect]
     Active Substance: CETUXIMAB
     Dosage: 300 MG, WEEKLY (1/W)
     Route: 042
     Dates: start: 20161214, end: 20170118

REACTIONS (6)
  - Decreased appetite [Unknown]
  - Off label use [Unknown]
  - Movement disorder [Unknown]
  - Dermatitis acneiform [Not Recovered/Not Resolved]
  - Neutrophil count decreased [Recovering/Resolving]
  - Interstitial lung disease [Fatal]

NARRATIVE: CASE EVENT DATE: 20161028
